FAERS Safety Report 5101189-1 (Version None)
Quarter: 2006Q3

REPORT INFORMATION
  Report Type: 
  Country: None (occurrence: None)
  Receive Date: 20060911
  Receipt Date: 20060905
  Transmission Date: 20061208
  Serious: Yes (Hospitalization)
  Sender: FDA-Public Use
  Company Number: FR-AVENTIS-200613086FR

PATIENT
  Age: 86 Year
  Sex: Male

DRUGS (7)
  1. AMARYL [Suspect]
     Indication: DIABETES MELLITUS
     Route: 048
     Dates: end: 20060729
  2. METFORMIN HCL [Suspect]
     Indication: DIABETES MELLITUS
     Route: 048
     Dates: end: 20060701
  3. METFORMIN HCL [Suspect]
     Route: 048
     Dates: start: 20060730, end: 20060730
  4. ALLOPURINOL [Concomitant]
     Route: 048
  5. ALPRESS [Concomitant]
     Route: 048
  6. FOSINOPRIL SODIUM AND HYDROCHLOROTHIAZIDE [Concomitant]
     Route: 048
  7. ASPIRIN [Concomitant]
     Route: 048

REACTIONS (6)
  - CONFUSIONAL STATE [None]
  - DEHYDRATION [None]
  - FALL [None]
  - HYPOGLYCAEMIA [None]
  - MALNUTRITION [None]
  - RENAL FAILURE ACUTE [None]
